FAERS Safety Report 8658593 (Version 2)
Quarter: 2012Q4

REPORT INFORMATION
  Report Type: 
  Country: DK (occurrence: DK)
  Receive Date: 20120710
  Receipt Date: 20120917
  Transmission Date: 20130627
  Serious: Yes (Hospitalization)
  Sender: FDA-Public Use
  Company Number: PHHY2012DK058706

PATIENT
  Age: 40 Year
  Sex: Female

DRUGS (1)
  1. GILENYA [Suspect]
     Dosage: UNK UKN, UNK
     Route: 048
     Dates: start: 20120702

REACTIONS (3)
  - Atrial fibrillation [Recovered/Resolved]
  - Heart rate increased [Unknown]
  - Chest discomfort [Not Recovered/Not Resolved]
